FAERS Safety Report 25444926 (Version 2)
Quarter: 2025Q3

REPORT INFORMATION
  Report Type: Spontaneous
  Country: CA (occurrence: CA)
  Receive Date: 20250617
  Receipt Date: 20250813
  Transmission Date: 20251021
  Serious: Yes (Other)
  Sender: CELLTRION
  Company Number: CA-PFIZER INC-202500009975

PATIENT

DRUGS (6)
  1. INFLECTRA [Suspect]
     Active Substance: INFLIXIMAB-DYYB
     Indication: Rheumatoid arthritis
     Dates: start: 20180226
  2. INFLECTRA [Suspect]
     Active Substance: INFLIXIMAB-DYYB
     Dates: start: 20181211, end: 20190808
  3. INFLECTRA [Suspect]
     Active Substance: INFLIXIMAB-DYYB
     Dates: start: 20191115, end: 20240723
  4. INFLECTRA [Suspect]
     Active Substance: INFLIXIMAB-DYYB
     Dates: start: 20240827
  5. INFLECTRA [Suspect]
     Active Substance: INFLIXIMAB-DYYB
     Dates: start: 20241217
  6. INFLECTRA [Suspect]
     Active Substance: INFLIXIMAB-DYYB

REACTIONS (5)
  - Rectal haemorrhage [Unknown]
  - Haemorrhoids [Unknown]
  - Influenza [Unknown]
  - Nasopharyngitis [Unknown]
  - Off label use [Unknown]

NARRATIVE: CASE EVENT DATE: 20181211
